FAERS Safety Report 25115722 (Version 1)
Quarter: 2025Q1

REPORT INFORMATION
  Report Type: Report from Study
  Country: CA (occurrence: CA)
  Receive Date: 20250325
  Receipt Date: 20250325
  Transmission Date: 20250408
  Serious: Yes (Death, Hospitalization)
  Sender: ABBVIE
  Company Number: CA-ABBVIE-6188479

PATIENT
  Age: 69 Year
  Sex: Female

DRUGS (2)
  1. VENETOCLAX [Suspect]
     Active Substance: VENETOCLAX
     Indication: Acute myeloid leukaemia
     Dosage: 400 MG PO DAILY X 28 DAYS,?VENCLEXTA 100 MG TABLET
     Route: 048
     Dates: start: 20241118
  2. AZACITIDINE [Concomitant]
     Active Substance: AZACITIDINE
     Indication: Product used for unknown indication

REACTIONS (3)
  - Death [Fatal]
  - Neutropenia [Unknown]
  - Splenic infarction [Unknown]

NARRATIVE: CASE EVENT DATE: 20250306
